FAERS Safety Report 11281902 (Version 1)
Quarter: 2015Q3

REPORT INFORMATION
  Report Type: Spontaneous
  Country: US (occurrence: US)
  Receive Date: 20150717
  Receipt Date: 20150717
  Transmission Date: 20151125
  Serious: No
  Sender: FDA-Public Use
  Company Number: US-ASTRAZENECA-2015SE65993

PATIENT
  Sex: Female

DRUGS (2)
  1. BYDUREON [Suspect]
     Active Substance: EXENATIDE
     Indication: DIABETES MELLITUS
     Route: 058
     Dates: start: 2015
  2. EFFEXOR [Concomitant]
     Active Substance: VENLAFAXINE HYDROCHLORIDE
     Indication: DEPRESSION
     Route: 048
     Dates: start: 2014

REACTIONS (8)
  - Abnormal dreams [Unknown]
  - Injection site mass [Recovering/Resolving]
  - Crying [Unknown]
  - Needle issue [Unknown]
  - Emotional disorder [Unknown]
  - Injection site inflammation [Unknown]
  - Anxiety [Unknown]
  - Injection site pruritus [Unknown]
